FAERS Safety Report 12802342 (Version 2)
Quarter: 2017Q4

REPORT INFORMATION
  Report Type: Spontaneous
  Country: US (occurrence: US)
  Receive Date: 20161003
  Receipt Date: 20171109
  Transmission Date: 20180320
  Serious: No
  Sender: FDA-Public Use
  Company Number: US-JAZZ-2016-US-012380

PATIENT
  Sex: Female

DRUGS (24)
  1. XYREM [Suspect]
     Active Substance: SODIUM OXYBATE
     Indication: CATAPLEXY
  2. ALEVE [Concomitant]
     Active Substance: NAPROXEN SODIUM
  3. TRAZODONE HYDROCHLORIDE. [Concomitant]
     Active Substance: TRAZODONE HYDROCHLORIDE
  4. ADVIL [Concomitant]
     Active Substance: IBUPROFEN
  5. CURCUMIN COMPLEX [Concomitant]
  6. DHEA [Concomitant]
     Active Substance: PRASTERONE
  7. FISH OIL [Concomitant]
     Active Substance: FISH OIL
  8. GESLUTIN [Concomitant]
  9. XYREM [Suspect]
     Active Substance: SODIUM OXYBATE
     Indication: NARCOLEPSY
     Dosage: 4.5 G, BID
     Route: 048
     Dates: start: 201001
  10. GARLIC. [Concomitant]
     Active Substance: GARLIC
  11. GLUCOSAMINE/CHONDROITIN [Concomitant]
  12. HYALURONIC ACID SODIUM [Concomitant]
  13. MVI [Concomitant]
     Active Substance: VITAMINS
  14. WOMAN^S PASSAGE [Concomitant]
  15. METHADONE HCL [Concomitant]
     Active Substance: METHADONE HYDROCHLORIDE
  16. NATURE-THROID [Concomitant]
     Active Substance: THYROID, PORCINE
  17. PROBIOTIC [Concomitant]
     Active Substance: PROBIOTICS NOS
  18. LEVOFLOXACIN. [Concomitant]
     Active Substance: LEVOFLOXACIN
  19. JOINT SUPPLEMENT [Concomitant]
  20. ADDERALL [Concomitant]
     Active Substance: AMPHETAMINE ASPARTATE\AMPHETAMINE SULFATE\DEXTROAMPHETAMINE SACCHARATE\DEXTROAMPHETAMINE SULFATE
  21. VITAMIN C [Concomitant]
     Active Substance: ASCORBIC ACID
  22. LYRICA [Concomitant]
     Active Substance: PREGABALIN
  23. RESTORIL [Concomitant]
     Active Substance: TEMAZEPAM
  24. SEROQUEL [Concomitant]
     Active Substance: QUETIAPINE FUMARATE

REACTIONS (3)
  - Food poisoning [Unknown]
  - Menopause [Unknown]
  - Seasonal affective disorder [Recovering/Resolving]

NARRATIVE: CASE EVENT DATE: 2015
